FAERS Safety Report 25078126 (Version 2)
Quarter: 2025Q2

REPORT INFORMATION
  Report Type: Spontaneous
  Country: PL (occurrence: PL)
  Receive Date: 20250314
  Receipt Date: 20250401
  Transmission Date: 20250717
  Serious: Yes (Hospitalization, Other)
  Sender: ROCHE
  Company Number: PL-CHEPLA-2025002950

PATIENT
  Age: 39 Year

DRUGS (10)
  1. VALGANCICLOVIR [Suspect]
     Active Substance: VALGANCICLOVIR
     Indication: Antiviral prophylaxis
     Route: 065
     Dates: start: 2022
  2. GANCICLOVIR [Suspect]
     Active Substance: GANCICLOVIR
     Indication: Cytomegalovirus infection
     Route: 065
     Dates: start: 202208
  3. GANCICLOVIR [Suspect]
     Active Substance: GANCICLOVIR
     Route: 065
     Dates: start: 202208
  4. GANCICLOVIR [Suspect]
     Active Substance: GANCICLOVIR
     Route: 065
  5. MYCOPHENOLATE MOFETIL [Suspect]
     Active Substance: MYCOPHENOLATE MOFETIL
     Indication: Immunosuppression
     Dosage: REDUCTION OF MYCOPHENOLATE MOFETIL DOSE TO 1 G/DAY WAS ALSO RECOMMENDED.
     Route: 065
     Dates: start: 20220422, end: 202209
  6. MYCOPHENOLATE MOFETIL [Suspect]
     Active Substance: MYCOPHENOLATE MOFETIL
     Route: 065
  7. FOSCARNET [Suspect]
     Active Substance: FOSCARNET
     Indication: Cytomegalovirus infection
     Route: 042
     Dates: end: 20230119
  8. TACROLIMUS [Suspect]
     Active Substance: TACROLIMUS
     Indication: Immunosuppression
     Dosage: PROLONGED-RELEASE TACROLIMUS
     Route: 065
     Dates: start: 20220422
  9. PREDNISONE [Suspect]
     Active Substance: PREDNISONE
     Indication: Immunosuppression
     Dosage: PREDNISONE 5 MG ONCE DAILY
     Route: 065
     Dates: start: 20220422
  10. MARIBAVIR [Concomitant]
     Active Substance: MARIBAVIR
     Indication: Cytomegalovirus infection
     Route: 065
     Dates: start: 20230123

REACTIONS (7)
  - Drug resistance [Unknown]
  - Drug ineffective [Unknown]
  - Pseudomonas infection [Recovered/Resolved]
  - Klebsiella infection [Recovered/Resolved]
  - Staphylococcal infection [Recovered/Resolved]
  - Bacterial infection [Recovered/Resolved]
  - Cytomegalovirus infection [Recovered/Resolved]

NARRATIVE: CASE EVENT DATE: 20230101
